FAERS Safety Report 4678079-1 (Version None)
Quarter: 2005Q2

REPORT INFORMATION
  Report Type: 
  Country: None (occurrence: None)
  Receive Date: 20050527
  Receipt Date: 20050527
  Transmission Date: 20051028
  Serious: No
  Sender: FDA-Public Use
  Company Number: None

PATIENT
  Sex: Male

DRUGS (1)
  1. LIDODERM [Suspect]
     Indication: PAIN
     Dosage: ONE PATCH TOPICALLY
     Route: 061
     Dates: start: 20050515

REACTIONS (4)
  - INCORRECT DRUG ADMINISTRATION DURATION [None]
  - MEDICATION ERROR [None]
  - OPEN WOUND [None]
  - THERMAL BURN [None]
